FAERS Safety Report 7918060 (Version 3)
Quarter: 2013Q4

REPORT INFORMATION
  Report Type: Spontaneous
  Country: US (occurrence: US)
  Receive Date: 20110428
  Receipt Date: 20131114
  Transmission Date: 20140711
  Serious: No
  Sender: FDA-Public Use
  Company Number: US-ASTRAZENECA-2010SE36307

PATIENT
  Age: 41 Year
  Sex: Female

DRUGS (1)
  1. ZOMIG [Suspect]
     Indication: MIGRAINE
     Route: 048

REACTIONS (7)
  - Malaise [Unknown]
  - Migraine [Unknown]
  - Migraine [Unknown]
  - Rhinorrhoea [Unknown]
  - Sneezing [Unknown]
  - Oropharyngeal pain [Unknown]
  - Drug dose omission [Unknown]
